FAERS Safety Report 26142148 (Version 1)
Quarter: 2025Q4

REPORT INFORMATION
  Report Type: Spontaneous
  Country: US (occurrence: None)
  Receive Date: 20251210
  Receipt Date: 20251210
  Transmission Date: 20260118
  Serious: No
  Sender: HALOZYME
  Company Number: US-HALOZYME THERAPEUTICS, INC.-2025-US-TX -09347

PATIENT
  Age: 65 Year

DRUGS (1)
  1. XYOSTED [Suspect]
     Active Substance: TESTOSTERONE ENANTHATE
     Indication: Product used for unknown indication

REACTIONS (3)
  - Injection site pain [Unknown]
  - Discomfort [Unknown]
  - Injury associated with device [Unknown]
